FAERS Safety Report 7341260-7 (Version None)
Quarter: 2011Q1

REPORT INFORMATION
  Report Type: 
  Country: None (occurrence: None)
  Receive Date: 20110309
  Receipt Date: 20110224
  Transmission Date: 20110831
  Serious: Yes (Other)
  Sender: FDA-Public Use
  Company Number: PHEH2005US11579

PATIENT
  Sex: Male

DRUGS (2)
  1. ZOMETA [Suspect]
     Indication: PROSTATE CANCER METASTATIC
     Dosage: 4 MG, QMO
     Route: 042
     Dates: start: 20041001
  2. LUPRON [Concomitant]

REACTIONS (12)
  - PAIN IN JAW [None]
  - JOINT STIFFNESS [None]
  - ORAL DISCOMFORT [None]
  - ARTHROPATHY [None]
  - THIRST [None]
  - BLOOD UREA INCREASED [None]
  - DEHYDRATION [None]
  - BONE DISORDER [None]
  - GLOSSITIS [None]
  - OSTEONECROSIS OF JAW [None]
  - TOOTH DISORDER [None]
  - BACK PAIN [None]
